FAERS Safety Report 4263702-6 (Version None)
Quarter: 2004Q1

REPORT INFORMATION
  Report Type: 
  Country: None (occurrence: None)
  Receive Date: 20040102
  Receipt Date: 20031224
  Transmission Date: 20041129
  Serious: Yes (Other)
  Sender: FDA-Public Use
  Company Number: HQWYE905324DEC03

PATIENT
  Sex: 0

DRUGS (2)
  1. CORDARONE [Suspect]
     Dosage: 300 MG 2X PER 1 DAY; INTRAVENOUS
     Route: 042
     Dates: start: 20031213, end: 20031213
  2. CORDARONE [Suspect]
     Dosage: 200 MG 1X PER 1 DAY; ORAL
     Route: 048
     Dates: start: 20031215

REACTIONS (1)
  - HALLUCINATION, VISUAL [None]
